FAERS Safety Report 9947220 (Version 1)
Quarter: 2014Q1

REPORT INFORMATION
  Report Type: Report from Study
  Country: US (occurrence: US)
  Receive Date: 20140303
  Receipt Date: 20140303
  Transmission Date: 20141002
  Serious: No
  Sender: FDA-Public Use
  Company Number: US-ABBVIE-13P-163-1059789-00

PATIENT
  Age: 31 Year
  Sex: Female

DRUGS (3)
  1. HUMIRA [Suspect]
     Indication: RHEUMATOID ARTHRITIS
     Dates: start: 20120328, end: 20120328
  2. ABILIFY [Concomitant]
     Indication: DEPRESSION
     Route: 048
  3. DESIPRAMINE [Concomitant]
     Indication: DEPRESSION
     Route: 048

REACTIONS (1)
  - Bipolar disorder [Unknown]
